FAERS Safety Report 24084702 (Version 2)
Quarter: 2024Q3

REPORT INFORMATION
  Report Type: Spontaneous
  Country: US (occurrence: US)
  Receive Date: 20240712
  Receipt Date: 20240918
  Transmission Date: 20241016
  Serious: Yes (Other)
  Sender: CSL BEHRING
  Company Number: US-BEH-2024175296

PATIENT
  Age: 7 Year
  Sex: Female
  Weight: 37.19 kg

DRUGS (1)
  1. HIZENTRA [Suspect]
     Active Substance: HUMAN IMMUNOGLOBULIN G
     Dosage: 4 G, QW
     Route: 058
     Dates: start: 202404

REACTIONS (3)
  - Atypical pneumonia [Recovering/Resolving]
  - Croup infectious [Recovering/Resolving]
  - Crying [Unknown]

NARRATIVE: CASE EVENT DATE: 20240601
